FAERS Safety Report 4877189-3 (Version None)
Quarter: 2005Q4

REPORT INFORMATION
  Report Type: 
  Country: None (occurrence: None)
  Receive Date: 20051206
  Receipt Date: 20051101
  Transmission Date: 20060501
  Serious: No
  Sender: FDA-Public Use
  Company Number: USA0509109653

PATIENT
  Age: 53 Year
  Sex: Male

DRUGS (2)
  1. CYMBALTA [Suspect]
     Indication: OBSESSIVE-COMPULSIVE DISORDER
     Dosage: 60 MG AT BEDTIME
  2. DEXTROAMPHETAMINE [Concomitant]

REACTIONS (6)
  - CHAPPED LIPS [None]
  - DRY MOUTH [None]
  - HYPOAESTHESIA ORAL [None]
  - MYALGIA [None]
  - PAIN [None]
  - URINARY HESITATION [None]
